FAERS Safety Report 7525087-9 (Version None)
Quarter: 2011Q2

REPORT INFORMATION
  Report Type: 
  Country: None (occurrence: None)
  Receive Date: 20110606
  Receipt Date: 20110531
  Transmission Date: 20111010
  Serious: Yes (Other)
  Sender: FDA-Public Use
  Company Number: US-BRISTOL-MYERS SQUIBB COMPANY-15797855

PATIENT
  Age: 68 Year
  Sex: Male

DRUGS (2)
  1. ABILIFY [Suspect]
     Indication: MAJOR DEPRESSION
     Dates: start: 20110527
  2. ZOLOFT [Suspect]
     Indication: MAJOR DEPRESSION

REACTIONS (2)
  - ADRENAL NEOPLASM [None]
  - GASTROINTESTINAL HAEMORRHAGE [None]
